FAERS Safety Report 9275114 (Version 1)
Quarter: 2013Q2

REPORT INFORMATION
  Report Type: Spontaneous
  Country: US (occurrence: US)
  Receive Date: 20130507
  Receipt Date: 20130507
  Transmission Date: 20140414
  Serious: Yes (Other)
  Sender: FDA-Public Use
  Company Number: US-PFIZER INC-2013140801

PATIENT
  Age: 68 Year
  Sex: Female
  Weight: 70.3 kg

DRUGS (3)
  1. LYRICA [Suspect]
     Indication: NEURALGIA
     Dosage: 75 MG, 2X/DAY
     Route: 048
     Dates: end: 2013
  2. HYDROCODONE [Concomitant]
     Dosage: UNK
  3. TRAZODONE [Concomitant]
     Dosage: UNK

REACTIONS (8)
  - Hypoacusis [Unknown]
  - Activities of daily living impaired [Unknown]
  - Emotional disorder [Unknown]
  - Pain [Unknown]
  - Swelling [Unknown]
  - Tremor [Unknown]
  - Body height decreased [Unknown]
  - Inappropriate schedule of drug administration [Unknown]
